FAERS Safety Report 6330556-3 (Version None)
Quarter: 2009Q3

REPORT INFORMATION
  Report Type: 
  Country: None (occurrence: None)
  Receive Date: 20090826
  Receipt Date: 20090826
  Transmission Date: 20100115
  Serious: No
  Sender: FDA-Public Use
  Company Number: None

PATIENT
  Sex: Male
  Weight: 54.4316 kg

DRUGS (2)
  1. ZICAM COLD REMEDY NASAL GEL ONLY ONE STRENGTH ZICAM [Suspect]
     Indication: MULTIPLE ALLERGIES
     Dosage: USED IN NOSE WHEN COLD SYMPTOMS USED 3-4 BOTTLES NASAL
     Route: 045
  2. ZICAM COLD REMEDY NASAL GEL ONLY ONE STRENGTH ZICAM [Suspect]
     Indication: NASOPHARYNGITIS
     Dosage: USED IN NOSE WHEN COLD SYMPTOMS USED 3-4 BOTTLES NASAL
     Route: 045

REACTIONS (2)
  - ANOSMIA [None]
  - HYPOSMIA [None]
